FAERS Safety Report 4348725-0 (Version None)
Quarter: 2004Q2

REPORT INFORMATION
  Report Type: 
  Country: None (occurrence: None)
  Receive Date: 20040427
  Receipt Date: 20030609
  Transmission Date: 20050107
  Serious: Yes (Hospitalization, Disabling, Congenital Anomaly, Other)
  Sender: FDA-Public Use
  Company Number: US-MERCK-0306USA01131

PATIENT
  Age: 43 Year
  Sex: Female
  Weight: 65 kg

DRUGS (29)
  1. VICODIN ES [Concomitant]
     Indication: BACK PAIN
     Route: 065
     Dates: end: 20010101
  2. ANALGESIC OR ANESTHETIC (UNSPECIFIED) [Concomitant]
     Indication: BACK PAIN
     Route: 051
     Dates: start: 20010115, end: 20010115
  3. BECONASE [Concomitant]
     Route: 065
  4. CELEBREX [Concomitant]
     Indication: BACK PAIN
     Route: 065
     Dates: end: 20000731
  5. VALIUM [Concomitant]
     Indication: MUSCLE SPASMS
     Route: 065
     Dates: start: 20000424
  6. ESTRATEST [Concomitant]
     Route: 065
     Dates: start: 20000102, end: 20010101
  7. ESTRATEST [Concomitant]
     Route: 065
  8. MICROZIDE [Suspect]
     Route: 065
     Dates: end: 20020621
  9. MICROZIDE [Suspect]
     Route: 065
     Dates: end: 20011101
  10. ZESTORETIC [Concomitant]
     Route: 065
     Dates: end: 20020621
  11. PRINZIDE [Suspect]
     Route: 048
     Dates: start: 20020523, end: 20020617
  12. PREVACID [Concomitant]
     Route: 065
     Dates: end: 20010101
  13. PREVACID [Concomitant]
     Route: 065
  14. CLARITIN [Concomitant]
     Route: 065
     Dates: end: 20011121
  15. CLARITIN [Concomitant]
     Route: 065
  16. VIOXX [Suspect]
     Indication: BACK PAIN
     Route: 048
     Dates: start: 20000801, end: 20000805
  17. VIOXX [Suspect]
     Route: 048
     Dates: start: 20000806, end: 20010601
  18. VIOXX [Suspect]
     Route: 048
     Dates: start: 20010628, end: 20010721
  19. VIOXX [Suspect]
     Route: 048
     Dates: start: 20010722, end: 20020116
  20. VIOXX [Suspect]
     Route: 048
     Dates: start: 20020117, end: 20020425
  21. VIOXX [Suspect]
     Indication: PAIN
     Route: 048
     Dates: start: 20000801, end: 20000805
  22. VIOXX [Suspect]
     Route: 048
     Dates: start: 20000806, end: 20010601
  23. VIOXX [Suspect]
     Route: 048
     Dates: start: 20010628, end: 20010721
  24. VIOXX [Suspect]
     Route: 048
     Dates: start: 20010722, end: 20020116
  25. VIOXX [Suspect]
     Route: 048
     Dates: start: 20020117, end: 20020425
  26. IMITREX [Concomitant]
     Route: 065
     Dates: start: 19940101
  27. TRAZODONE HYDROCHLORIDE [Concomitant]
     Route: 065
     Dates: end: 20010101
  28. TRAZODONE HYDROCHLORIDE [Concomitant]
     Route: 065
  29. EFFEXOR [Concomitant]
     Route: 065
     Dates: start: 20010101

REACTIONS (48)
  - ADJUSTMENT DISORDER WITH DEPRESSED MOOD [None]
  - AFFECTIVE DISORDER [None]
  - ALOPECIA [None]
  - ANAEMIA [None]
  - ANGINA UNSTABLE [None]
  - ANKYLOSING SPONDYLITIS [None]
  - CARPAL TUNNEL SYNDROME [None]
  - CHEST DISCOMFORT [None]
  - CHEST PAIN [None]
  - CHRONIC OBSTRUCTIVE AIRWAYS DISEASE [None]
  - CONCUSSION [None]
  - CONSTIPATION [None]
  - DEPRESSION [None]
  - DRUG INEFFECTIVE [None]
  - DYSPHAGIA [None]
  - DYSPHORIA [None]
  - FACET JOINT SYNDROME [None]
  - FACIAL BONES FRACTURE [None]
  - FALL [None]
  - FIBROMYALGIA [None]
  - GASTROOESOPHAGEAL REFLUX DISEASE [None]
  - HYPERCALCAEMIA [None]
  - HYPERKALAEMIA [None]
  - HYPERTENSION [None]
  - HYPOTHYROIDISM [None]
  - INTERVERTEBRAL DISC DEGENERATION [None]
  - INTERVERTEBRAL DISC DISPLACEMENT [None]
  - INTERVERTEBRAL DISC PROTRUSION [None]
  - JAW DISORDER [None]
  - MYOFASCIAL PAIN SYNDROME [None]
  - NECK PAIN [None]
  - NEPHRITIS INTERSTITIAL [None]
  - OESOPHAGEAL STENOSIS [None]
  - OSTEOARTHRITIS [None]
  - OSTEOPOROSIS [None]
  - PALPITATIONS [None]
  - PERIPHERAL SENSORY NEUROPATHY [None]
  - POLYARTHRITIS [None]
  - PSORIATIC ARTHROPATHY [None]
  - RAYNAUD'S PHENOMENON [None]
  - REFLUX OESOPHAGITIS [None]
  - REITER'S SYNDROME [None]
  - RENAL FAILURE [None]
  - SACROILIITIS [None]
  - SPINAL CORD COMPRESSION [None]
  - SPONDYLOARTHROPATHY [None]
  - URINARY TRACT PAIN [None]
  - WEIGHT INCREASED [None]
